FAERS Safety Report 4496886-5 (Version None)
Quarter: 2004Q4

REPORT INFORMATION
  Report Type: 
  Country: None (occurrence: None)
  Receive Date: 20040928
  Receipt Date: 20040724
  Transmission Date: 20050328
  Serious: No
  Sender: FDA-Public Use
  Company Number: 04P-163-0268073-00

PATIENT
  Age: 77 Year
  Sex: Female
  Weight: 60.3284 kg

DRUGS (3)
  1. HUMIRA [Suspect]
     Indication: RHEUMATOID ARTHRITIS
     Dosage: 40 MG, 1 IN 2 WK, SUBCUTANEOUS
     Route: 058
     Dates: start: 20040312, end: 20040706
  2. VICODIN [Concomitant]
  3. LANSOPRAZOLE [Concomitant]

REACTIONS (4)
  - ANXIETY [None]
  - JOINT SWELLING [None]
  - OEDEMA PERIPHERAL [None]
  - OPEN WOUND [None]
